FAERS Safety Report 13490598 (Version 2)
Quarter: 2017Q3

REPORT INFORMATION
  Report Type: Spontaneous
  Country: BE (occurrence: BE)
  Receive Date: 20170427
  Receipt Date: 20170728
  Transmission Date: 20171127
  Serious: Yes (Death, Life-Threatening, Hospitalization, Disabling, Other)
  Sender: FDA-Public Use
  Company Number: BE-BRISTOL-MYERS SQUIBB COMPANY-BMS-2017-033892

PATIENT
  Age: 83 Year
  Sex: Female

DRUGS (1)
  1. OPDIVO [Suspect]
     Active Substance: NIVOLUMAB
     Indication: LUNG ADENOCARCINOMA
     Dosage: 3 MG/KG, UNK
     Route: 042
     Dates: start: 20160913, end: 20170219

REACTIONS (4)
  - Cholestasis [Fatal]
  - Renal failure [Fatal]
  - Dialysis [Unknown]
  - Pancreatic neoplasm [Fatal]

NARRATIVE: CASE EVENT DATE: 20170228
